FAERS Safety Report 8387156-3 (Version None)
Quarter: 2012Q2

REPORT INFORMATION
  Report Type: 
  Country: None (occurrence: None)
  Receive Date: 20120525
  Receipt Date: 20111219
  Transmission Date: 20120825
  Serious: Yes (Hospitalization)
  Sender: FDA-Public Use
  Company Number: US-ROCHE-1020709

PATIENT
  Sex: Male
  Weight: 84.444 kg

DRUGS (7)
  1. ZOLPIDEM TARTRATE [Concomitant]
     Dates: start: 20111128
  2. OMEPRAZOLE [Concomitant]
     Dates: start: 20070625
  3. PREDNISONE TAB [Concomitant]
     Dates: start: 20060731
  4. MABTHERA [Suspect]
     Indication: RHEUMATOID ARTHRITIS
     Route: 042
     Dates: start: 20050629
  5. FOLIC ACID [Concomitant]
     Dates: start: 20051122
  6. HYDROCODONE BITARTRATE + ACETAMINOPHEN [Concomitant]
     Dates: start: 20110624
  7. CALCIUM CARBONATE [Concomitant]
     Dates: start: 20040120

REACTIONS (1)
  - SYSTEMIC INFLAMMATORY RESPONSE SYNDROME [None]
